FAERS Safety Report 18605332 (Version 3)
Quarter: 2021Q1

REPORT INFORMATION
  Report Type: Spontaneous
  Country: US (occurrence: US)
  Receive Date: 20201211
  Receipt Date: 20210115
  Transmission Date: 20210419
  Serious: No
  Sender: FDA-Public Use
  Company Number: US-009507513-2012USA001793

PATIENT
  Age: 34 Year
  Sex: Female
  Weight: 133.42 kg

DRUGS (1)
  1. NEXPLANON [Suspect]
     Active Substance: ETONOGESTREL
     Dosage: 1 DOSAGE FORM (IMPLANT), LEFT UPPER ARM, ONCE EVERY 3 YEARS
     Route: 059
     Dates: start: 20200728, end: 20201105

REACTIONS (2)
  - Device placement issue [Recovered/Resolved]
  - Device breakage [Recovered/Resolved]

NARRATIVE: CASE EVENT DATE: 20200728
